FAERS Safety Report 8117414-9 (Version None)
Quarter: 2012Q1

REPORT INFORMATION
  Report Type: 
  Country: None (occurrence: None)
  Receive Date: 20120207
  Receipt Date: 20120123
  Transmission Date: 20120608
  Serious: Yes (Hospitalization, Other)
  Sender: FDA-Public Use
  Company Number: JP-AMGEN-JPNSP2011063761

PATIENT
  Age: 58 Year
  Sex: Female
  Weight: 38 kg

DRUGS (12)
  1. BONOTEO [Concomitant]
     Dosage: 1 MG, 1X/DAY
     Route: 048
  2. VOLTAREN [Concomitant]
     Dosage: 25 MG, BID (SUPPOSITORY)
  3. MIYA BM [Concomitant]
     Dosage: 1 DF, 3X/DAY
     Route: 048
  4. ENBREL [Suspect]
     Indication: RHEUMATOID ARTHRITIS
     Dosage: 25 MG, 2X/WEEK
     Dates: start: 20061129, end: 20101201
  5. STAYBLA [Concomitant]
     Dosage: 0.1 MG, 2X/DAY
     Route: 048
  6. MOBIC [Concomitant]
     Dosage: 10 MG, 1X/DAY
     Route: 048
  7. PREDNISOLONE [Concomitant]
     Dosage: 5 MG, 2X/DAY
     Route: 048
  8. OMEPRAZOLE [Concomitant]
     Dosage: 10 MG, QD
     Route: 048
  9. ALFAROL [Concomitant]
     Dosage: 0.25 UG, 1X/DAY
     Route: 048
  10. PREDNISOLONE [Concomitant]
     Dosage: 1 MG, 4X/DAY
     Route: 048
  11. ANPLAG [Concomitant]
     Dosage: 100 MG, 3X/DAY
  12. METHYCOBAL [Concomitant]
     Dosage: 500 UG, 3X/DAY

REACTIONS (4)
  - KNEE OPERATION [None]
  - LEUKOCYTOCLASTIC VASCULITIS [None]
  - RHEUMATOID VASCULITIS [None]
  - CELLULITIS [None]
